FAERS Safety Report 10207190 (Version 2)
Quarter: 2014Q2

REPORT INFORMATION
  Report Type: Spontaneous
  Country: US (occurrence: US)
  Receive Date: 20140530
  Receipt Date: 20140530
  Transmission Date: 20141212
  Serious: No
  Sender: FDA-Public Use
  Company Number: US-009507513-1309USA010505

PATIENT
  Age: 62 Year
  Sex: Female
  Weight: 59.86 kg

DRUGS (8)
  1. MIRALAX [Suspect]
     Indication: BOWEL PREPARATION
     Dosage: UNK, UNKNOWN
     Route: 048
     Dates: start: 20130819, end: 20130819
  2. LIPITOR [Concomitant]
     Indication: BLOOD CHOLESTEROL
     Dosage: UNK, UNKNOWN
  3. AMPYRA [Concomitant]
     Indication: MULTIPLE SCLEROSIS
     Dosage: UNK, UNKNOWN
  4. GABAPENTIN [Concomitant]
     Indication: MULTIPLE SCLEROSIS
     Dosage: UNK, UNKNOWN
  5. VITAMINS (UNSPECIFIED) [Concomitant]
     Indication: PRODUCT USED FOR UNKNOWN INDICATION
     Dosage: UNK, UNKNOWN
  6. CHOLECALCIFEROL [Concomitant]
     Indication: PRODUCT USED FOR UNKNOWN INDICATION
     Dosage: UNK, UNKNOWN
  7. OMEGA-3 MARINE TRIGLYCERIDES [Concomitant]
     Indication: PRODUCT USED FOR UNKNOWN INDICATION
     Dosage: UNK, UNKNOWN
  8. ASPIRIN [Concomitant]
     Indication: PRODUCT USED FOR UNKNOWN INDICATION
     Dosage: UNK, UNKNOWN

REACTIONS (2)
  - Off label use [Unknown]
  - Exposure during pregnancy [Unknown]
